FAERS Safety Report 16061740 (Version 5)
Quarter: 2020Q4

REPORT INFORMATION
  Report Type: Spontaneous
  Country: US (occurrence: US)
  Receive Date: 20190312
  Receipt Date: 20201105
  Transmission Date: 20210113
  Serious: Yes (Other)
  Sender: FDA-Public Use
  Company Number: US-PFIZER INC-2019101464

PATIENT
  Age: 77 Year
  Sex: Female

DRUGS (1)
  1. XELJANZ XR [Suspect]
     Active Substance: TOFACITINIB CITRATE
     Dosage: 11 MG, ALTERNATE DAY(1 TABLET EVERY OTHER DAY)

REACTIONS (5)
  - Arthralgia [Unknown]
  - Intentional product misuse [Unknown]
  - Blindness [Unknown]
  - Liver disorder [Unknown]
  - Pain in extremity [Unknown]
